FAERS Safety Report 4720354-6 (Version None)
Quarter: 2005Q3

REPORT INFORMATION
  Report Type: 
  Country: None (occurrence: None)
  Receive Date: 20050719
  Receipt Date: 20050701
  Transmission Date: 20060218
  Serious: Yes (Hospitalization, Other)
  Sender: FDA-Public Use
  Company Number: US_0507119762

PATIENT
  Age: 78 Year
  Sex: Female

DRUGS (1)
  1. HUMULIN 70/30 [Suspect]
     Indication: DIABETES MELLITUS
     Dosage: 66 U DAY
     Dates: start: 19800101

REACTIONS (5)
  - RETINAL OPERATION [None]
  - SKIN DISCOLOURATION [None]
  - VASCULAR BYPASS GRAFT [None]
  - VISUAL ACUITY REDUCED [None]
  - VITREOUS FLOATERS [None]
